FAERS Safety Report 23418981 (Version 4)
Quarter: 2024Q1

REPORT INFORMATION
  Report Type: Spontaneous
  Country: US (occurrence: US)
  Receive Date: 20240118
  Receipt Date: 20240326
  Transmission Date: 20240410
  Serious: No
  Sender: FDA-Public Use
  Company Number: US-PFIZER INC-202400013683

PATIENT
  Age: 93 Year
  Sex: Male
  Weight: 74.84 kg

DRUGS (6)
  1. VYNDAMAX [Suspect]
     Active Substance: TAFAMIDIS
     Indication: Cardiac amyloidosis
     Dosage: 61 MG, DAILY
     Route: 048
     Dates: start: 2023
  2. VYNDAMAX [Suspect]
     Active Substance: TAFAMIDIS
     Dosage: UNK
  3. VYNDAMAX [Suspect]
     Active Substance: TAFAMIDIS
     Dosage: UNK
  4. ENTRESTO [Concomitant]
     Active Substance: SACUBITRIL\VALSARTAN
     Dosage: UNK
  5. ELIQUIS [Concomitant]
     Active Substance: APIXABAN
     Dosage: UNK
  6. GABAPENTIN [Concomitant]
     Active Substance: GABAPENTIN
     Dosage: UNK
     Dates: start: 202312

REACTIONS (2)
  - Visual impairment [Unknown]
  - Condition aggravated [Unknown]
